FAERS Safety Report 22648689 (Version 1)
Quarter: 2023Q2

REPORT INFORMATION
  Report Type: Report from Study
  Country: US (occurrence: US)
  Receive Date: 20230628
  Receipt Date: 20230628
  Transmission Date: 20230722
  Serious: Yes (Other)
  Sender: FDA-Public Use
  Company Number: US-ABBVIE-5306211

PATIENT
  Age: 63 Year
  Sex: Female

DRUGS (3)
  1. RINVOQ [Suspect]
     Active Substance: UPADACITINIB
     Indication: Rheumatoid arthritis
     Route: 048
     Dates: start: 20220921
  2. VITAMIN B12 2500 MC [Concomitant]
     Indication: Product used for unknown indication
  3. PFIZER COVID-19 VACCIN 30 MCG [Concomitant]
     Indication: COVID-19 immunisation

REACTIONS (1)
  - Epistaxis [Recovered/Resolved]

NARRATIVE: CASE EVENT DATE: 20230505
